FAERS Safety Report 14911840 (Version 3)
Quarter: 2021Q1

REPORT INFORMATION
  Report Type: Spontaneous
  Country: US (occurrence: US)
  Receive Date: 20180518
  Receipt Date: 20210204
  Transmission Date: 20210419
  Serious: No
  Sender: FDA-Public Use
  Company Number: US-ASTRAZENECA-2018SE54511

PATIENT
  Age: 58 Year
  Sex: Female
  Weight: 127.5 kg

DRUGS (21)
  1. BYDUREON [Suspect]
     Active Substance: EXENATIDE
     Indication: TYPE 2 DIABETES MELLITUS
     Route: 058
     Dates: start: 20180328
  2. AMARYL [Concomitant]
     Active Substance: GLIMEPIRIDE
     Route: 048
  3. PRINZIDE [Concomitant]
     Active Substance: HYDROCHLOROTHIAZIDE\LISINOPRIL
     Indication: HYPERTENSION
     Route: 048
  4. LISINOPRIL. [Suspect]
     Active Substance: LISINOPRIL
     Indication: HYPERTENSION
     Dosage: 20 TO 25 MG, DAILY
     Route: 048
     Dates: start: 2015
  5. METFORMIN [Concomitant]
     Active Substance: METFORMIN HYDROCHLORIDE
     Indication: TYPE 2 DIABETES MELLITUS
     Route: 048
     Dates: start: 2014
  6. VITAMIN B COMPLEX [Concomitant]
     Active Substance: CYANOCOBALAMIN\DEXPANTHENOL\NIACINAMIDE\PYRIDOXINE HYDROCHLORIDE\RIBOFLAVIN 5^-PHOSPHATE SODIUM\THIAMINE HYDROCHLORIDE\VITAMIN B COMPLEX
  7. GLUCOPHAGE XR [Concomitant]
     Active Substance: METFORMIN HYDROCHLORIDE
     Route: 048
  8. VITAMIN B6 [Concomitant]
     Active Substance: PYRIDOXINE HYDROCHLORIDE
     Route: 048
  9. ASPIRIN. [Concomitant]
     Active Substance: ASPIRIN
     Route: 048
     Dates: start: 2014
  10. HYDROCORTISONE. [Concomitant]
     Active Substance: HYDROCORTISONE
     Dosage: APPLY TOPICALLY THREE TIMES A DAY
     Route: 061
  11. NYSTATIN. [Concomitant]
     Active Substance: NYSTATIN
     Dosage: APPLY TWICE A DAY TO UNDERNEATH BRAST UNTIL RASH IS GONE
  12. LIPITOR [Concomitant]
     Active Substance: ATORVASTATIN CALCIUM
     Indication: BLOOD CHOLESTEROL INCREASED
     Route: 048
     Dates: start: 2015
  13. FLEXERIL [Concomitant]
     Active Substance: CYCLOBENZAPRINE HYDROCHLORIDE
     Indication: MUSCLE RELAXANT THERAPY
     Dosage: AS REQUIRED
     Route: 048
     Dates: start: 2015
  14. VITAMIN C [Concomitant]
     Active Substance: ASCORBIC ACID
     Route: 048
  15. VITAMIN D3 [Concomitant]
     Active Substance: CHOLECALCIFEROL
     Route: 048
  16. TRICOR [Concomitant]
     Active Substance: FENOFIBRATE
     Route: 048
  17. FLEXERIL [Concomitant]
     Active Substance: CYCLOBENZAPRINE HYDROCHLORIDE
     Indication: MUSCLE SPASMS
     Route: 048
  18. INSULIN [Concomitant]
     Active Substance: INSULIN NOS
  19. VITAMIN D2 [Concomitant]
     Active Substance: ERGOCALCIFEROL
     Route: 048
  20. MULTIVITAMIN WITH MINERAL [Concomitant]
     Active Substance: MINERALS\VITAMINS
     Route: 048
  21. KENALOG [Concomitant]
     Active Substance: TRIAMCINOLONE ACETONIDE
     Dosage: APPLY THIN FILM TO AFFECTED AREAS TWO TO FOUR TIMES A DAILY AS NEEDED: AVOID FACE AND GROIN AREAS

REACTIONS (59)
  - Acquired mixed hyperlipidaemia [Unknown]
  - Fear [Unknown]
  - Increased tendency to bruise [Unknown]
  - Fungal skin infection [Unknown]
  - Ulcer [Unknown]
  - Injection site erythema [Unknown]
  - Feeling abnormal [Unknown]
  - Injection site bruising [Unknown]
  - Fear of injection [Unknown]
  - Haemorrhoids [Unknown]
  - Rosacea [Unknown]
  - Fibrous histiocytoma [Unknown]
  - Hypertension [Unknown]
  - Rash [Unknown]
  - Communication disorder [Unknown]
  - Visual impairment [Unknown]
  - Dysphagia [Unknown]
  - Gastric dilatation [Unknown]
  - Essential hypertension [Unknown]
  - Rectal haemorrhage [Unknown]
  - Hepatic steatosis [Unknown]
  - Melanocytic naevus [Unknown]
  - Solar dermatitis [Unknown]
  - Excessive cerumen production [Unknown]
  - Diabetic neuropathy [Unknown]
  - Dyslexia [Unknown]
  - Injection site induration [Unknown]
  - Product dose omission issue [Unknown]
  - Lymphoedema [Unknown]
  - Cellulitis [Unknown]
  - Acrochordon [Unknown]
  - Viral upper respiratory tract infection [Unknown]
  - Acute stress disorder [Unknown]
  - Injection site pruritus [Unknown]
  - Needle issue [Unknown]
  - Device use error [Unknown]
  - Blood pressure increased [Unknown]
  - Urinary incontinence [Unknown]
  - Anogenital warts [Unknown]
  - Dry eye [Unknown]
  - Tic [Unknown]
  - Injection site nodule [Unknown]
  - Glycosylated haemoglobin increased [Unknown]
  - Pain in extremity [Unknown]
  - Eye movement disorder [Unknown]
  - Pallor [Unknown]
  - Blood glucose increased [Unknown]
  - Head discomfort [Unknown]
  - Intentional product misuse [Unknown]
  - Ill-defined disorder [Unknown]
  - Stress [Unknown]
  - Obesity [Unknown]
  - Back pain [Unknown]
  - Sleep apnoea syndrome [Unknown]
  - Skin discolouration [Unknown]
  - Dry skin [Unknown]
  - Gastrooesophageal reflux disease [Unknown]
  - Blood cholesterol increased [Unknown]
  - Osteopenia [Unknown]

NARRATIVE: CASE EVENT DATE: 2015
